FAERS Safety Report 5342760-1 (Version None)
Quarter: 2007Q2

REPORT INFORMATION
  Report Type: 
  Country: None (occurrence: None)
  Receive Date: 20070601
  Receipt Date: 20070521
  Transmission Date: 20071010
  Serious: Yes (Life-Threatening)
  Sender: FDA-Public Use
  Company Number: IT-PFIZER INC-2007041787

PATIENT
  Sex: Female

DRUGS (4)
  1. EPIRUBICIN HYDROCHLORIDE [Suspect]
     Indication: BREAST CANCER
     Route: 042
     Dates: start: 20070228, end: 20070228
  2. TAXOTERE [Suspect]
     Indication: BREAST CANCER
     Dosage: DAILY DOSE:150MG/M*2-FREQ:CYCLIC
     Route: 042
     Dates: start: 20070228, end: 20070228
  3. DECADRON [Concomitant]
     Route: 048
     Dates: start: 20070228, end: 20070228
  4. NAVOBAN [Concomitant]
     Dates: start: 20070228, end: 20070228

REACTIONS (1)
  - COLITIS ULCERATIVE [None]
